FAERS Safety Report 9318194 (Version 1)
Quarter: 2013Q2

REPORT INFORMATION
  Report Type: Spontaneous
  Country: US (occurrence: US)
  Receive Date: 20130530
  Receipt Date: 20130530
  Transmission Date: 20140414
  Serious: No
  Sender: FDA-Public Use
  Company Number: US-GLAXOSMITHKLINE-A1008021A

PATIENT
  Sex: Male

DRUGS (2)
  1. VENTOLIN [Suspect]
     Indication: DYSPNOEA
     Route: 055
     Dates: start: 20130109
  2. AZITHROMYCIN [Concomitant]

REACTIONS (2)
  - Pharyngeal oedema [Not Recovered/Not Resolved]
  - Throat irritation [Unknown]
